FAERS Safety Report 13895936 (Version 4)
Quarter: 2019Q3

REPORT INFORMATION
  Report Type: Spontaneous
  Country: US (occurrence: US)
  Receive Date: 20170823
  Receipt Date: 20190822
  Transmission Date: 20191004
  Serious: Yes (Death, Other)
  Sender: FDA-Public Use
  Company Number: US-ROCHE-1980975

PATIENT
  Age: 81 Year
  Sex: Female

DRUGS (1)
  1. ACTIVASE [Suspect]
     Active Substance: ALTEPLASE
     Indication: CEREBROVASCULAR ACCIDENT
     Route: 065

REACTIONS (7)
  - Respiratory failure [Fatal]
  - Hypoxic-ischaemic encephalopathy [Fatal]
  - Death [Fatal]
  - Haemorrhage [Unknown]
  - Pulseless electrical activity [Fatal]
  - Shock haemorrhagic [Fatal]
  - Cerebrovascular accident [Fatal]

NARRATIVE: CASE EVENT DATE: 20170616
